FAERS Safety Report 24673193 (Version 1)
Quarter: 2024Q4

REPORT INFORMATION
  Report Type: Spontaneous
  Country: US (occurrence: US)
  Receive Date: 20241128
  Receipt Date: 20241128
  Transmission Date: 20250114
  Serious: No
  Sender: IBSA INSTITUT BIOCHIMIQUE
  Company Number: US-IBSA PHARMA INC.-2024IBS000463

PATIENT

DRUGS (4)
  1. TIROSINT [Suspect]
     Active Substance: LEVOTHYROXINE SODIUM
     Indication: Graves^ disease
     Dosage: 62.5 MICROGRAM, QD; 5 DAYS PER WEEK
  2. TIROSINT [Suspect]
     Active Substance: LEVOTHYROXINE SODIUM
     Dosage: 75 MICROGRAM, QD; 2 DAYS PER WEEK
  3. TIROSINT [Suspect]
     Active Substance: LEVOTHYROXINE SODIUM
     Dosage: 62.5 MICROGRAM, QD; 4 DAYS PER WEEK
     Dates: start: 20240930
  4. TIROSINT [Suspect]
     Active Substance: LEVOTHYROXINE SODIUM
     Dosage: 75 MICROGRAM, QD; 3 DAYS PER WEEK
     Dates: start: 20240930

REACTIONS (2)
  - Thyroid function test abnormal [Unknown]
  - Product storage error [Unknown]
